FAERS Safety Report 7598073-0 (Version None)
Quarter: 2011Q3

REPORT INFORMATION
  Report Type: 
  Country: None (occurrence: None)
  Receive Date: 20110708
  Receipt Date: 20110707
  Transmission Date: 20111222
  Serious: Yes (Death, Hospitalization)
  Sender: FDA-Public Use
  Company Number: NO-ROXANE LABORATORIES, INC.-2011-RO-00954RO

PATIENT
  Age: 58 Year
  Sex: Female

DRUGS (8)
  1. CITALOPRAM HYDROBROMIDE [Suspect]
     Dosage: 20 MG
  2. METFORMIN HCL [Suspect]
  3. ASPIRIN [Suspect]
  4. SLOW ACTING INSULIN [Suspect]
  5. BENDROFLUMETHIAZIDE [Suspect]
  6. RAPID INSULIN [Suspect]
  7. SIMVASTATIN [Suspect]
     Dosage: 20 MG
  8. AMITRIPTYLINE HCL [Suspect]
     Dosage: 50 MG

REACTIONS (2)
  - HEAD INJURY [None]
  - SEROTONIN SYNDROME [None]
